FAERS Safety Report 4943179-5 (Version None)
Quarter: 2006Q1

REPORT INFORMATION
  Report Type: 
  Country: None (occurrence: None)
  Receive Date: 20060314
  Receipt Date: 20051122
  Transmission Date: 20060701
  Serious: Yes (Hospitalization)
  Sender: FDA-Public Use
  Company Number: US-MERCK-0511USA03795

PATIENT
  Age: 67 Year
  Sex: Female
  Weight: 64 kg

DRUGS (8)
  1. VIOXX [Suspect]
     Indication: OSTEOARTHRITIS
     Route: 048
     Dates: start: 20010503, end: 20031212
  2. VIOXX [Suspect]
     Route: 048
  3. CLONIDINE [Concomitant]
     Route: 048
  4. HYDROCHLOROTHIAZIDE [Concomitant]
     Route: 065
  5. VASOTEC RPD [Concomitant]
     Route: 048
  6. METOPROLOL [Concomitant]
     Route: 065
  7. MENEST [Concomitant]
     Route: 065
  8. PROTONIX [Concomitant]
     Route: 065

REACTIONS (16)
  - ABDOMINAL BRUIT [None]
  - ANXIETY [None]
  - ATRIAL FIBRILLATION [None]
  - BLOOD CHOLESTEROL INCREASED [None]
  - BLOOD CREATININE INCREASED [None]
  - CATARACT [None]
  - CEREBROVASCULAR ACCIDENT [None]
  - CHEST PAIN [None]
  - DEPRESSION [None]
  - HYPERTENSIVE CRISIS [None]
  - HYPONATRAEMIA [None]
  - INSOMNIA [None]
  - MACULAR DEGENERATION [None]
  - RADICULOPATHY [None]
  - RETINAL VEIN OCCLUSION [None]
  - TOE DEFORMITY [None]
